FAERS Safety Report 5641999-5 (Version None)
Quarter: 2008Q1

REPORT INFORMATION
  Report Type: 
  Country: None (occurrence: None)
  Receive Date: 20080227
  Receipt Date: 20080215
  Transmission Date: 20080703
  Serious: Yes (Death, Other)
  Sender: FDA-Public Use
  Company Number: NL-PFIZER INC-2008015306

PATIENT
  Sex: Male

DRUGS (5)
  1. VORICONAZOLE [Suspect]
  2. AMBISOME [Concomitant]
  3. CASPOFUNGIN [Concomitant]
  4. ITRACONAZOLE [Concomitant]
  5. POSACONAZOLE [Concomitant]

REACTIONS (2)
  - DEATH [None]
  - LEUKOENCEPHALOPATHY [None]
